FAERS Safety Report 7997685-X (Version None)
Quarter: 2011Q4

REPORT INFORMATION
  Report Type: 
  Country: None (occurrence: None)
  Receive Date: 20111221
  Receipt Date: 20111209
  Transmission Date: 20120403
  Serious: Yes (Hospitalization)
  Sender: FDA-Public Use
  Company Number: JP-PFIZER INC-2011308898

PATIENT
  Age: 68 Year
  Sex: Male
  Weight: 44 kg

DRUGS (10)
  1. CAMPTOSAR [Suspect]
     Dosage: 210 MG/BODY (150 MG/M2)
     Route: 041
     Dates: start: 20100427, end: 20100427
  2. FLUOROURACIL [Concomitant]
     Dosage: 420 MG/BODY (300 MG/M2)
     Route: 040
     Dates: start: 20100209, end: 20100412
  3. CAMPTOSAR [Suspect]
     Indication: COLORECTAL CANCER
     Dosage: 210 MG/BODY (150 MG/M2)
     Route: 041
     Dates: start: 20091215, end: 20100125
  4. AVASTIN [Concomitant]
     Indication: COLORECTAL CANCER
     Dosage: 220 MG/BODY
     Route: 041
     Dates: start: 20091215, end: 20100427
  5. CAMPTOSAR [Suspect]
     Dosage: 168 MG, UNK
     Route: 041
     Dates: start: 20100209, end: 20100412
  6. FLUOROURACIL [Concomitant]
     Dosage: 420 MG/BODY (300 MG/M2)
     Route: 040
     Dates: start: 20100427, end: 20100427
  7. LEVOLEUCOVORIN CALCIUM [Concomitant]
     Indication: COLORECTAL CANCER
     Dosage: 280 MG/BODY (200 MG/M2)
     Route: 041
     Dates: start: 20091215, end: 20100427
  8. FLUOROURACIL [Concomitant]
     Indication: COLORECTAL CANCER
     Dosage: 560 MG/BODY (400 MG/M2)
     Route: 040
     Dates: start: 20091215, end: 20100125
  9. FLUOROURACIL [Concomitant]
     Dosage: 3660 MG/BODY/D1-2 (2400 MG/M2/D1-2)
     Route: 041
     Dates: start: 20091215, end: 20100125
  10. FLUOROURACIL [Concomitant]
     Dosage: 2800 MG/BODY/D1-2 (2000 MG/M2/D1-2)
     Route: 041
     Dates: start: 20100209, end: 20100412

REACTIONS (3)
  - ABDOMINAL PAIN [None]
  - ABDOMINAL DISTENSION [None]
  - EPISTAXIS [None]
